FAERS Safety Report 20321211 (Version 1)
Quarter: 2022Q1

REPORT INFORMATION
  Report Type: Spontaneous
  Country: US (occurrence: US)
  Receive Date: 20220111
  Receipt Date: 20220111
  Transmission Date: 20220424
  Serious: No
  Sender: FDA-Public Use
  Company Number: US-BAYER-2022A002829

PATIENT

DRUGS (4)
  1. MIRALAX [Suspect]
     Active Substance: POLYETHYLENE GLYCOL 3350
     Indication: Gastrointestinal disorder
  2. IBRANCE [Concomitant]
     Active Substance: PALBOCICLIB
     Indication: Breast cancer
     Dosage: 125 MG DAILY
     Route: 048
     Dates: start: 20211122, end: 20220103
  3. TAXOL [Concomitant]
     Active Substance: PACLITAXEL
  4. ANASTROZOLE [Concomitant]
     Active Substance: ANASTROZOLE

REACTIONS (7)
  - Diarrhoea [Unknown]
  - Neoplasm progression [Unknown]
  - Erythema nodosum [None]
  - White blood cell count decreased [None]
  - Nasal congestion [None]
  - Cough [None]
  - Nasal congestion [None]
